FAERS Safety Report 7523016-5 (Version None)
Quarter: 2011Q2

REPORT INFORMATION
  Report Type: 
  Country: None (occurrence: None)
  Receive Date: 20110603
  Receipt Date: 20110527
  Transmission Date: 20111010
  Serious: Yes (Other)
  Sender: FDA-Public Use
  Company Number: JP-MERCK-1106USA00080

PATIENT
  Age: 66 Year
  Sex: Male

DRUGS (4)
  1. JANUVIA [Suspect]
     Route: 048
  2. ACTOS [Concomitant]
     Route: 048
  3. AMARYL [Concomitant]
     Route: 048
  4. AMARYL [Concomitant]
     Route: 048

REACTIONS (2)
  - IIIRD NERVE PARALYSIS [None]
  - HYPOGLYCAEMIA [None]
